FAERS Safety Report 19212040 (Version 3)
Quarter: 2021Q2

REPORT INFORMATION
  Report Type: Report from Study
  Country: BR (occurrence: BR)
  Receive Date: 20210504
  Receipt Date: 20210625
  Transmission Date: 20210717
  Serious: Yes (Other)
  Sender: FDA-Public Use
  Company Number: BR-TAKEDA-BR201803869

PATIENT
  Age: 9 Year
  Sex: Male
  Weight: 24 kg

DRUGS (2)
  1. IDURSULFASE [Suspect]
     Active Substance: IDURSULFASE
     Dosage: 2.5 DOSAGE FORM, 1/WEEK
     Route: 042
  2. IDURSULFASE [Suspect]
     Active Substance: IDURSULFASE
     Indication: MUCOPOLYSACCHARIDOSIS II
     Dosage: UNK
     Route: 042

REACTIONS (20)
  - Influenza [Unknown]
  - Nasopharyngitis [Unknown]
  - Respiratory disorder [Unknown]
  - Therapy interrupted [Unknown]
  - Insomnia [Unknown]
  - Cardiac valve disease [Unknown]
  - Dyspnoea [Unknown]
  - Product dose omission issue [Unknown]
  - Pain [Unknown]
  - Pyrexia [Unknown]
  - Weight decreased [Unknown]
  - Psychomotor hyperactivity [Unknown]
  - Suspected COVID-19 [Unknown]
  - Agitation [Unknown]
  - Decreased immune responsiveness [Unknown]
  - Ear infection [Recovered/Resolved]
  - Off label use [Unknown]
  - Drug tolerance [Unknown]
  - Pharyngitis [Unknown]
  - Poor venous access [Unknown]

NARRATIVE: CASE EVENT DATE: 201701
